FAERS Safety Report 17191674 (Version 3)
Quarter: 2020Q1

REPORT INFORMATION
  Report Type: Spontaneous
  Country: BR (occurrence: BR)
  Receive Date: 20191223
  Receipt Date: 20200117
  Transmission Date: 20200409
  Serious: Yes (Disabling)
  Sender: FDA-Public Use
  Company Number: BR-TAKEDA-2019TUS072712

PATIENT
  Age: 57 Year
  Sex: Female

DRUGS (1)
  1. DEXILANT [Suspect]
     Active Substance: DEXLANSOPRAZOLE
     Indication: GASTRITIS EROSIVE
     Dosage: 60 MILLIGRAM, QD
     Route: 048
     Dates: start: 201910, end: 201912

REACTIONS (5)
  - Monoplegia [Recovered/Resolved]
  - Asthenia [Recovered/Resolved]
  - Pain in extremity [Recovered/Resolved]
  - Off label use [Unknown]
  - Gait disturbance [Recovered/Resolved]
